FAERS Safety Report 5299427-8 (Version None)
Quarter: 2007Q1

REPORT INFORMATION
  Report Type: 
  Country: None (occurrence: None)
  Receive Date: 20070201
  Receipt Date: 20061030
  Transmission Date: 20070707
  Serious: No
  Sender: FDA-Public Use
  Company Number: 2006PV024265

PATIENT
  Age: 58 Year
  Sex: Female
  Weight: 92.5338 kg

DRUGS (12)
  1. BYETTA [Suspect]
     Indication: DIABETES MELLITUS NON-INSULIN-DEPENDENT
     Dosage: SEE IMAGE
     Route: 058
     Dates: start: 20061101, end: 20060101
  2. BYETTA [Suspect]
     Indication: DIABETES MELLITUS NON-INSULIN-DEPENDENT
     Dosage: SEE IMAGE
     Route: 058
     Dates: start: 20061018, end: 20061031
  3. BYETTA [Suspect]
     Indication: DIABETES MELLITUS NON-INSULIN-DEPENDENT
     Dosage: SEE IMAGE
     Route: 058
     Dates: start: 20060101
  4. BYETTA [Suspect]
  5. METFORMIN HCL [Concomitant]
  6. AVANDIA [Concomitant]
  7. CADUET [Concomitant]
  8. NORVASC [Concomitant]
  9. LIPITOR [Concomitant]
  10. INSULIN [Concomitant]
  11. NEXIUM [Concomitant]
  12. LEBID [Concomitant]

REACTIONS (10)
  - BLOOD GLUCOSE INCREASED [None]
  - DECREASED APPETITE [None]
  - EYE PAIN [None]
  - INJECTION SITE HAEMORRHAGE [None]
  - INJECTION SITE IRRITATION [None]
  - INJECTION SITE PAIN [None]
  - LETHARGY [None]
  - MUSCLE TWITCHING [None]
  - NAUSEA [None]
  - WEIGHT DECREASED [None]
